FAERS Safety Report 17464639 (Version 7)
Quarter: 2020Q2

REPORT INFORMATION
  Report Type: Report from Study
  Country: DE (occurrence: DE)
  Receive Date: 20200226
  Receipt Date: 20200429
  Transmission Date: 20200713
  Serious: Yes (Hospitalization, Other)
  Sender: FDA-Public Use
  Company Number: DE-AMGEN-DEUCT2020030391

PATIENT
  Age: 70 Year
  Sex: Male
  Weight: 75 kg

DRUGS (12)
  1. LENALIDOMIDE [Suspect]
     Active Substance: LENALIDOMIDE
     Indication: PLASMA CELL MYELOMA
     Dosage: 15 MILLIGRAM, PER CHEMO REGIM
     Route: 048
     Dates: start: 20200116
  2. CARFILZOMIB [Suspect]
     Active Substance: CARFILZOMIB
     Dosage: 68 MILLIGRAM (DOSE INCREASED), PER CHEMO REGIM
     Route: 042
     Dates: start: 20200305
  3. DEXAMETHASONE. [Suspect]
     Active Substance: DEXAMETHASONE
     Indication: DERMATITIS EXFOLIATIVE GENERALISED
     Dosage: UNK, PER CHEMO REGIM
     Route: 042
     Dates: start: 20200305
  4. ACYCLOVIR [ACICLOVIR] [Suspect]
     Active Substance: ACYCLOVIR
     Indication: ANTIVIRAL PROPHYLAXIS
     Dosage: 400 MILLIGRAM, BID
     Route: 048
     Dates: start: 20200116
  5. MONOVO [Concomitant]
     Indication: INFLAMMATION
     Dosage: 90 GRAM, BID
     Route: 061
     Dates: start: 20200214, end: 20200219
  6. FEXOFENADINE [Concomitant]
     Active Substance: FEXOFENADINE HYDROCHLORIDE
     Indication: DERMATITIS EXFOLIATIVE GENERALISED
  7. DEXAMETHASONE. [Suspect]
     Active Substance: DEXAMETHASONE
     Indication: PLASMA CELL MYELOMA
     Dosage: 40 MILLIGRAM, PER CHEMO REGIM
     Route: 042
     Dates: start: 20200116
  8. LENALIDOMIDE [Suspect]
     Active Substance: LENALIDOMIDE
     Dosage: UNK UNK, PER CHEMO REGIM
     Route: 048
  9. COTRIMOXAZOLE [Suspect]
     Active Substance: SULFAMETHOXAZOLE\TRIMETHOPRIM
     Indication: ANTIBIOTIC PROPHYLAXIS
     Dosage: 960 MILLIGRAM, Q2WK
     Route: 048
     Dates: start: 20200116, end: 20200219
  10. MONOVO [Concomitant]
     Indication: DERMATITIS EXFOLIATIVE GENERALISED
  11. FEXOFENADINE [Concomitant]
     Active Substance: FEXOFENADINE HYDROCHLORIDE
     Indication: INFLAMMATION
     Dosage: 180 MILLIGRAM, BID
     Route: 048
     Dates: start: 20200214, end: 20200219
  12. CARFILZOMIB [Suspect]
     Active Substance: CARFILZOMIB
     Indication: PLASMA CELL MYELOMA
     Dosage: 20 MILLIGRAM/SQ. METER, PER CHEMO REGIM
     Route: 042
     Dates: start: 20200116

REACTIONS (3)
  - Influenza [Recovered/Resolved]
  - Acute kidney injury [Recovered/Resolved]
  - Dermatitis exfoliative generalised [Recovered/Resolved with Sequelae]

NARRATIVE: CASE EVENT DATE: 20200219
